FAERS Safety Report 9759977 (Version 2)
Quarter: 2014Q1

REPORT INFORMATION
  Report Type: Spontaneous
  Country: FR (occurrence: None)
  Receive Date: 20131212
  Receipt Date: 20140131
  Transmission Date: 20141002
  Serious: Yes (Hospitalization)
  Sender: FDA-Public Use
  Company Number: FR-JNJFOC-20131202219

PATIENT
  Age: 59 Year
  Sex: Male

DRUGS (14)
  1. DACOGEN [Suspect]
     Indication: ACUTE MYELOID LEUKAEMIA
     Route: 042
     Dates: start: 20130805, end: 20130809
  2. AUGMENTIN [Suspect]
     Indication: PRODUCT USED FOR UNKNOWN INDICATION
     Dosage: 3 G, 1 IN 1 DAY, UNKNOWN
     Dates: start: 20130902
  3. MIDOSTAURIN [Concomitant]
  4. SPECIAFOLDINE (FOLIC ACID) [Concomitant]
  5. LEXOMIL (BROMAZEPAM) [Concomitant]
  6. ZOPHREN (ONDANSETRON HYDROCHLORIDE) [Concomitant]
  7. VERAPAMIL HYDROCHLORIDE (VERAPAMIL HYDROCHLORIDE) [Concomitant]
  8. VITAMINE C (ASCORBIC ACID) [Concomitant]
  9. OROCAL D3 (LEKOVIT CA) [Concomitant]
  10. SERTRALINE HYDROCHLORIDE (SERTRALINE HYDROCHLORIDE) [Concomitant]
  11. CORTANCYL (PREDNISONE) [Concomitant]
  12. MOPRAL (OMEPRAZOLE) [Concomitant]
  13. PRIMPERAN (METOCLOPRAMIDE) [Concomitant]
  14. EXACYL (TRANEXAMIC ACID) (TRANEXAMIC ACID) [Concomitant]

REACTIONS (3)
  - Haemolytic anaemia [None]
  - Gastric haemorrhage [None]
  - Frequent bowel movements [None]
